FAERS Safety Report 6873584-1 (Version None)
Quarter: 2010Q3

REPORT INFORMATION
  Report Type: 
  Country: None (occurrence: None)
  Receive Date: 20100723
  Receipt Date: 20090129
  Transmission Date: 20110219
  Serious: No
  Sender: FDA-Public Use
  Company Number: US-PFIZER INC-2009162934

PATIENT
  Sex: Female
  Weight: 83.447 kg

DRUGS (4)
  1. CHANTIX [Suspect]
     Indication: SMOKING CESSATION THERAPY
     Dosage: 1 MG, 2X/DAY
     Dates: start: 20090120
  2. RANITIDINE [Concomitant]
     Dosage: UNK
  3. WELLBUTRIN [Concomitant]
     Dosage: UNK
  4. TROSPIUM CHLORIDE [Concomitant]
     Dosage: UNK

REACTIONS (3)
  - ERYTHEMA [None]
  - FEELING HOT [None]
  - NAUSEA [None]
